FAERS Safety Report 10254253 (Version 1)
Quarter: 2014Q2

REPORT INFORMATION
  Report Type: Report from Study
  Country: ZA (occurrence: ZA)
  Receive Date: 20140624
  Receipt Date: 20140624
  Transmission Date: 20141212
  Serious: Yes (Death)
  Sender: FDA-Public Use
  Company Number: ZA-ROCHE-1423022

PATIENT
  Age: 93 Year
  Sex: Male

DRUGS (2)
  1. MIRCERA [Suspect]
     Indication: NEPHROGENIC ANAEMIA
     Route: 058
     Dates: start: 201403
  2. MIRCERA [Suspect]
     Route: 058
     Dates: start: 20120217

REACTIONS (4)
  - Death [Fatal]
  - Haematochezia [Unknown]
  - Haemoglobin decreased [Unknown]
  - Blood iron decreased [Unknown]
